FAERS Safety Report 10250904 (Version 1)
Quarter: 2014Q2

REPORT INFORMATION
  Report Type: Spontaneous
  Country: GB (occurrence: GB)
  Receive Date: 20140620
  Receipt Date: 20140620
  Transmission Date: 20141212
  Serious: Yes (Death)
  Sender: FDA-Public Use
  Company Number: PHHY2014GB072073

PATIENT
  Age: 14 Year
  Sex: Male
  Weight: 62 kg

DRUGS (2)
  1. FLUOXETINE [Suspect]
     Indication: DEPRESSION
     Dosage: 2.5 ML, QD
     Route: 048
     Dates: start: 20140320, end: 20140325
  2. FLUOXETINE [Suspect]
     Dosage: 5 ML, QD
     Route: 048
     Dates: start: 20140326, end: 20140330

REACTIONS (1)
  - Completed suicide [Fatal]
